FAERS Safety Report 8648938 (Version 2)
Quarter: 2013Q1

REPORT INFORMATION
  Report Type: Spontaneous
  Country: US (occurrence: US)
  Receive Date: 20120704
  Receipt Date: 20130228
  Transmission Date: 20140127
  Serious: Yes (Other)
  Sender: FDA-Public Use
  Company Number: US-AMGEN-USASP2012016133

PATIENT
  Age: 55 Year
  Sex: Male
  Weight: 91.2 kg

DRUGS (16)
  1. NEUPOGEN [Suspect]
     Indication: PRODUCT USED FOR UNKNOWN INDICATION
     Dosage: UNK
     Route: 065
  2. PEGASYS [Suspect]
     Indication: HEPATITIS C
     Dosage: 180 MUG, QWK
     Route: 058
     Dates: start: 2003
  3. PEGASYS [Suspect]
     Dosage: 180 MUG, QWK
     Route: 058
     Dates: start: 20040629, end: 2005
  4. PEGASYS [Suspect]
     Dosage: 180 MUG, QWK
     Route: 058
     Dates: start: 2008
  5. PEGASYS [Suspect]
     Dosage: 180 MUG, QWK
     Route: 058
     Dates: start: 20090317
  6. PEGASYS [Suspect]
     Dosage: 180 MUG, QWK
     Route: 058
     Dates: start: 20110629
  7. PEGASYS [Suspect]
     Dosage: 180 MUG, QWK
     Route: 058
     Dates: start: 20120108
  8. PEGASYS [Suspect]
     Dosage: 150 MUG, UNK
     Route: 058
  9. COPEGUS [Suspect]
     Indication: HEPATITIS C
     Dosage: 600 MG, BID (2 IN 1 D)
     Route: 048
     Dates: start: 20040629, end: 2005
  10. COPEGUS [Suspect]
     Dosage: 400 MG, BID, 1 IN MORNING AND 1 IN EVENING.
     Route: 048
     Dates: start: 20090317
  11. COPEGUS [Suspect]
     Dosage: 1200 MG/KG, UNK
     Route: 048
     Dates: start: 20110629
  12. COPEGUS [Suspect]
     Dosage: UNK, , DIVIDED DOSES
     Route: 048
     Dates: start: 20120108
  13. COPEGUS [Suspect]
     Dosage: UNK, TWO DIVIDED DOSES
     Route: 048
     Dates: start: 2003
  14. COPEGUS [Suspect]
     Dosage: 800 MG, UNK
     Route: 048
     Dates: start: 2008
  15. REBETOL [Suspect]
     Indication: HEPATITIS C
     Dosage: 2 DF, BID (2 IN 1 D)
     Route: 065
  16. PERCOCET [Concomitant]
     Indication: SPINAL CORD INJURY
     Dosage: UNK

REACTIONS (24)
  - Full blood count decreased [Unknown]
  - Night sweats [Unknown]
  - Tooth injury [Unknown]
  - Palpitations [Unknown]
  - Energy increased [Unknown]
  - Insomnia [Recovered/Resolved]
  - Anxiety [Recovered/Resolved]
  - Confusional state [Unknown]
  - Hallucination [Recovered/Resolved]
  - Mental disorder [Unknown]
  - Flatulence [Recovered/Resolved]
  - Increased tendency to bruise [Unknown]
  - Ill-defined disorder [Unknown]
  - Dry eye [Unknown]
  - Mood swings [Unknown]
  - Influenza like illness [Unknown]
  - Abdominal pain [Recovered/Resolved]
  - Abdominal pain upper [Unknown]
  - Back pain [Unknown]
  - Alopecia [Unknown]
  - Pain [Not Recovered/Not Resolved]
  - Platelet count decreased [Unknown]
  - Disease recurrence [Unknown]
  - Rash [Unknown]
